FAERS Safety Report 9824405 (Version 1)
Quarter: 2014Q1

REPORT INFORMATION
  Report Type: Spontaneous
  Country: FR (occurrence: FR)
  Receive Date: 20140116
  Receipt Date: 20140116
  Transmission Date: 20141002
  Serious: Yes (Other)
  Sender: FDA-Public Use
  Company Number: FR-AMGEN-FRASP2014002400

PATIENT
  Age: 73 Year
  Sex: Female

DRUGS (7)
  1. XGEVA [Suspect]
     Indication: PRODUCT USED FOR UNKNOWN INDICATION
     Dosage: 1 DF, QMO
     Route: 058
     Dates: start: 20131106
  2. AROMASINE [Concomitant]
  3. KARDEGIC [Concomitant]
     Dosage: 75 MG, UNK
     Route: 048
  4. BIPRETERAX                         /01421201/ [Concomitant]
  5. CARDENSIEL [Concomitant]
  6. FLECAINE [Concomitant]
  7. LEVOTHYROX [Concomitant]

REACTIONS (1)
  - Pruritus [Recovered/Resolved]
